FAERS Safety Report 19072227 (Version 1)
Quarter: 2021Q1

REPORT INFORMATION
  Report Type: Spontaneous
  Country: US (occurrence: US)
  Receive Date: 20210330
  Receipt Date: 20210330
  Transmission Date: 20210420
  Serious: Yes (Other)
  Sender: FDA-Public Use
  Company Number: US-MYLANLABS-2021M1018786

PATIENT
  Age: 38 Year
  Sex: Male

DRUGS (6)
  1. COBICISTAT [Suspect]
     Active Substance: COBICISTAT
     Indication: KAPOSI^S SARCOMA AIDS RELATED
     Dosage: UNK
     Route: 065
     Dates: start: 2013
  2. IMIQUIMOD. [Suspect]
     Active Substance: IMIQUIMOD
     Indication: KAPOSI^S SARCOMA AIDS RELATED
     Dosage: THREE TIMES WEEKLY FOR 12 WEEKS
     Route: 061
  3. TENOFOVIR DISOPROXIL [Suspect]
     Active Substance: TENOFOVIR DISOPROXIL
     Indication: KAPOSI^S SARCOMA AIDS RELATED
     Dosage: UNK
     Route: 065
     Dates: start: 2013
  4. DOXORUBICIN [Suspect]
     Active Substance: DOXORUBICIN
     Indication: KAPOSI^S SARCOMA AIDS RELATED
     Dosage: UNK
     Route: 042
  5. EMTRICITABINE [Suspect]
     Active Substance: EMTRICITABINE
     Indication: KAPOSI^S SARCOMA AIDS RELATED
     Dosage: UNK
     Route: 065
     Dates: start: 2013
  6. ELVITEGRAVIR [Suspect]
     Active Substance: ELVITEGRAVIR
     Indication: KAPOSI^S SARCOMA AIDS RELATED
     Dosage: UNK
     Route: 065
     Dates: start: 2013

REACTIONS (1)
  - Drug ineffective [Unknown]
